FAERS Safety Report 13691580 (Version 1)
Quarter: 2017Q2

REPORT INFORMATION
  Report Type: Spontaneous
  Country: FR (occurrence: FR)
  Receive Date: 20170626
  Receipt Date: 20170626
  Transmission Date: 20170830
  Serious: Yes (Other)
  Sender: FDA-Public Use
  Company Number: FR-ABBVIE-17P-056-2020162-00

PATIENT
  Age: 15 Year
  Sex: Male

DRUGS (2)
  1. DEPAKINE [Suspect]
     Active Substance: VALPROATE SODIUM
     Indication: PRODUCT USED FOR UNKNOWN INDICATION
     Route: 065
  2. TERCIAN (CYAMEMAZINE) [Suspect]
     Active Substance: CYAMEMAZINE
     Indication: PRODUCT USED FOR UNKNOWN INDICATION
     Route: 065

REACTIONS (8)
  - Osteoporosis [Unknown]
  - Deafness [Unknown]
  - Eye movement disorder [Unknown]
  - Skin odour abnormal [Unknown]
  - Tremor [Unknown]
  - Memory impairment [Unknown]
  - Diarrhoea [Unknown]
  - Coordination abnormal [Unknown]
